FAERS Safety Report 4352399-2 (Version None)
Quarter: 2004Q2

REPORT INFORMATION
  Report Type: 
  Country: None (occurrence: None)
  Receive Date: 20040504
  Receipt Date: 20040419
  Transmission Date: 20050107
  Serious: Yes (Other)
  Sender: FDA-Public Use
  Company Number: 200414278GDDC

PATIENT
  Age: 75 Year
  Sex: Male

DRUGS (11)
  1. KETEK [Suspect]
     Indication: PNEUMONIA
     Route: 048
     Dates: start: 20040412, end: 20040418
  2. WARFARIN SODIUM [Suspect]
     Route: 048
  3. COREG [Concomitant]
     Route: 048
  4. DIGOXIN [Concomitant]
     Route: 048
  5. SYNTHROID [Concomitant]
     Route: 048
  6. LASIX [Concomitant]
     Route: 048
  7. ALDACTONE [Concomitant]
     Route: 048
  8. VASOTEC [Concomitant]
     Route: 048
  9. PAXIL [Concomitant]
     Route: 048
  10. ZOCOR [Concomitant]
     Route: 048
  11. DIAZEPAM [Concomitant]
     Route: 048

REACTIONS (2)
  - DRUG INTERACTION [None]
  - INTERNATIONAL NORMALISED RATIO INCREASED [None]
